FAERS Safety Report 5251749-2 (Version None)
Quarter: 2007Q1

REPORT INFORMATION
  Report Type: 
  Country: None (occurrence: None)
  Receive Date: 20070228
  Receipt Date: 20061025
  Transmission Date: 20070707
  Serious: Yes (Life-Threatening, Hospitalization, Disabling, Other)
  Sender: FDA-Public Use
  Company Number: US-GLAXOSMITHKLINE-A0624893A

PATIENT
  Age: 44 Year
  Sex: Female

DRUGS (14)
  1. LAMICTAL [Suspect]
     Indication: BIPOLAR DISORDER
     Dosage: 100MG TWICE PER DAY
     Route: 048
  2. AMBIEN [Suspect]
     Indication: DRUG USE FOR UNKNOWN INDICATION
     Route: 065
  3. CLONIDINE [Suspect]
     Indication: DRUG USE FOR UNKNOWN INDICATION
     Route: 065
  4. TYLENOL W/ CODEINE [Suspect]
     Indication: DRUG USE FOR UNKNOWN INDICATION
     Route: 065
  5. ALCOHOLIC BEVERAGE [Suspect]
     Indication: DRUG USE FOR UNKNOWN INDICATION
     Route: 048
  6. LORAZEPAM [Concomitant]
  7. WELLBUTRIN SR [Concomitant]
  8. REMERON [Concomitant]
  9. OMEPRAZOLE [Concomitant]
  10. VICODIN [Concomitant]
  11. HYDROCHLOROTHIAZIDE [Concomitant]
  12. ALBUTEROL [Concomitant]
  13. SIMVASTATIN [Concomitant]
  14. CHOLECALCIFEROL [Concomitant]

REACTIONS (3)
  - DYSPHAGIA [None]
  - INTENTIONAL OVERDOSE [None]
  - SUICIDE ATTEMPT [None]
